FAERS Safety Report 8441695 (Version 2)
Quarter: 2012Q4

REPORT INFORMATION
  Report Type: 
  Country: EC (occurrence: EC)
  Receive Date: 20120305
  Receipt Date: 20120905
  Transmission Date: 20130627
  Serious: Yes (Other)
  Sender: FDA-Public Use
  Company Number: PHHY2012EC018562

PATIENT
  Sex: Female

DRUGS (3)
  1. ACLASTA [Suspect]
     Indication: OSTEOPOROSIS
     Dosage: 5 mg/100 ml
     Route: 042
     Dates: start: 20090521
  2. ALENDRONIC ACID [Suspect]
     Indication: OSTEOPOROSIS
     Dosage: 1 DF, weekly
     Dates: start: 1999, end: 2009
  3. BONVIVA [Suspect]
     Indication: OSTEOPOROSIS
     Dosage: 01 DF, once a month
     Route: 042

REACTIONS (2)
  - Tooth loss [Unknown]
  - Pain in jaw [Unknown]
